FAERS Safety Report 24711519 (Version 1)
Quarter: 2024Q4

REPORT INFORMATION
  Report Type: Spontaneous
  Country: US (occurrence: US)
  Receive Date: 20241209
  Receipt Date: 20241209
  Transmission Date: 20250114
  Serious: Yes (Other)
  Sender: MYLAN
  Company Number: US-MYLANLABS-2024M1109455

PATIENT
  Age: 17 Year
  Sex: Male

DRUGS (1)
  1. FENTANYL [Suspect]
     Active Substance: FENTANYL
     Indication: Product used for unknown indication
     Dosage: UNK
     Route: 065

REACTIONS (14)
  - Suicidal ideation [Unknown]
  - Post-traumatic stress disorder [Unknown]
  - Decreased interest [Unknown]
  - Sleep disorder [Unknown]
  - Nightmare [Unknown]
  - Temperature intolerance [Unknown]
  - Decreased appetite [Unknown]
  - Agitation [Unknown]
  - Depression [Unknown]
  - Tremor [Unknown]
  - Vomiting [Unknown]
  - Drug withdrawal syndrome [Unknown]
  - Intentional product use issue [Unknown]
  - Adulterated product [Unknown]
